FAERS Safety Report 14443837 (Version 1)
Quarter: 2018Q1

REPORT INFORMATION
  Report Type: Spontaneous
  Country: US (occurrence: US)
  Receive Date: 20180125
  Receipt Date: 20180125
  Transmission Date: 20180509
  Serious: No
  Sender: FDA-Public Use
  Company Number: None

PATIENT
  Age: 56 Year
  Sex: Female

DRUGS (1)
  1. CYCLOSPORINE MODIFIED [Suspect]
     Active Substance: CYCLOSPORINE
     Indication: RASH
     Route: 048
     Dates: start: 20171107

REACTIONS (3)
  - Peripheral coldness [None]
  - Alopecia [None]
  - Onychoclasis [None]

NARRATIVE: CASE EVENT DATE: 20180124
